FAERS Safety Report 9150433 (Version 4)
Quarter: 2014Q3

REPORT INFORMATION
  Report Type: Spontaneous
  Country: US (occurrence: None)
  Receive Date: 20130219
  Receipt Date: 20140801
  Transmission Date: 20150326
  Serious: Yes (Hospitalization)
  Sender: FDA-Public Use
  Company Number: 2013US001059

PATIENT
  Age: 46 Year
  Sex: Male
  Weight: 73 kg

DRUGS (10)
  1. MICAFUNGIN (MICAFUNGIN) [Concomitant]
  2. BUDESONIDE (BUDESONIDE) [Concomitant]
  3. DECLOMYCIN (DEMECLOCYCLINE HYDROCHLORIDE) [Concomitant]
  4. PREDNISONE. [Concomitant]
     Active Substance: PREDNISONE
  5. ICLUSIG [Suspect]
     Active Substance: PONATINIB
     Indication: CHRONIC MYELOID LEUKAEMIA
     Route: 048
     Dates: start: 20121220, end: 20130125
  6. DILAUDID (HYDROMORPHONE HYDROCHLORIDE) [Concomitant]
  7. OMEPRAZOLE (OMEPRAZOLE) [Concomitant]
     Active Substance: OMEPRAZOLE
  8. TACROLIMUS (TACROLIMUS) [Concomitant]
     Active Substance: TACROLIMUS
  9. URSODIOL (URSODIOL) [Concomitant]
  10. VANCOMYCIN (VANCOMYCIN) [Concomitant]

REACTIONS (11)
  - Liver function test abnormal [None]
  - Abdominal pain [None]
  - Abdominal pain upper [None]
  - Haemorrhoidal haemorrhage [None]
  - Constipation [None]
  - Cytomegalovirus test positive [None]
  - Graft versus host disease [None]
  - Blood bilirubin increased [None]
  - Pain [None]
  - Cytomegalovirus infection [None]
  - Pneumonia [None]

NARRATIVE: CASE EVENT DATE: 20130121
